FAERS Safety Report 17992515 (Version 1)
Quarter: 2020Q3

REPORT INFORMATION
  Report Type: Other
  Country: GB (occurrence: GB)
  Receive Date: 20200708
  Receipt Date: 20200708
  Transmission Date: 20201103
  Serious: Yes (Other)
  Sender: FDA-Public Use
  Company Number: GB-CELLTRION INC.-2020GB023949

PATIENT

DRUGS (4)
  1. PENTASA [Concomitant]
     Active Substance: MESALAMINE
  2. OMEPRAZOLE. [Concomitant]
     Active Substance: OMEPRAZOLE
  3. INFLIXIMAB (UNKNOWN) [Suspect]
     Active Substance: INFLIXIMAB
     Indication: CROHN^S DISEASE
     Dosage: 550 MILLIGRAM
     Route: 042
     Dates: start: 20180904, end: 20200608
  4. VITAMIN B12 [VITAMIN B12 NOS] [Concomitant]
     Active Substance: CYANOCOBALAMIN
     Dosage: 120

REACTIONS (1)
  - Paraesthesia [Unknown]

NARRATIVE: CASE EVENT DATE: 20200525
